FAERS Safety Report 9320929 (Version 1)
Quarter: 2013Q2

REPORT INFORMATION
  Report Type: Report from Study
  Country: PT (occurrence: PT)
  Receive Date: 20130531
  Receipt Date: 20130531
  Transmission Date: 20140414
  Serious: Yes (Hospitalization, Other)
  Sender: FDA-Public Use
  Company Number: PHHY2013PT053930

PATIENT
  Age: 44 Year
  Sex: Female

DRUGS (13)
  1. GILENYA [Suspect]
     Indication: MULTIPLE SCLEROSIS
     Dosage: UNK UKN, UNK
     Route: 048
     Dates: start: 20120417
  2. GILENYA [Suspect]
     Dosage: UNK UKN, UNK
     Route: 048
     Dates: start: 20120724
  3. GILENYA [Suspect]
     Dosage: 0.5 MG, QD
     Route: 048
     Dates: start: 20130320
  4. GABAPENTIN [Concomitant]
     Dosage: 600 MG, TID
  5. TIZANIDINE [Concomitant]
     Dosage: 2 MG, BID
  6. VESICARE [Concomitant]
     Dosage: 10 MG, UNK
  7. VESICARE [Concomitant]
     Dosage: 5 MG, UNK
  8. CARTIA [Concomitant]
  9. OMEPRAZOL [Concomitant]
     Dosage: 20 MG, UNK
  10. BACLOFEN [Concomitant]
     Dosage: 25 MG, UNK
  11. FLUOXETINE [Concomitant]
     Dosage: 20 MG, UNK
  12. SYMBICORT [Concomitant]
  13. SPIRIVA [Concomitant]

REACTIONS (21)
  - Pneumonia mycoplasmal [Recovering/Resolving]
  - Oxygen saturation decreased [Recovered/Resolved]
  - Dyspnoea [Recovered/Resolved]
  - Productive cough [Unknown]
  - Pyrexia [Recovered/Resolved]
  - Respiratory acidosis [Unknown]
  - Respiratory fatigue [Unknown]
  - Hypercapnia [Unknown]
  - Neutrophilia [Unknown]
  - Leukocytosis [Unknown]
  - Urinary tract infection [Recovered/Resolved]
  - Abdominal pain [Unknown]
  - Coma [Recovering/Resolving]
  - Bronchitis [Recovered/Resolved]
  - Blood lactate dehydrogenase increased [Unknown]
  - Hypoglycaemia [Unknown]
  - Herpes zoster [Unknown]
  - Blood creatine phosphokinase increased [Unknown]
  - Anaemia [Unknown]
  - Alanine aminotransferase increased [Unknown]
  - Aspartate aminotransferase increased [Unknown]
